FAERS Safety Report 23102302 (Version 2)
Quarter: 2023Q4

REPORT INFORMATION
  Report Type: Report from Study
  Country: DE (occurrence: DE)
  Receive Date: 20231025
  Receipt Date: 20231122
  Transmission Date: 20240110
  Serious: Yes (Hospitalization, Other)
  Sender: FDA-Public Use
  Company Number: DE-002147023-NVSC2023DE091223

PATIENT
  Sex: Female

DRUGS (4)
  1. ETANERCEPT [Suspect]
     Active Substance: ETANERCEPT
     Indication: Product used for unknown indication
     Dosage: 50 MILLIGRAM, QWK
     Route: 065
  2. ETANERCEPT [Suspect]
     Active Substance: ETANERCEPT
     Dosage: 50 MILLIGRAM
     Route: 065
     Dates: start: 202206
  3. OLUMIANT [Concomitant]
     Active Substance: BARICITINIB
     Dosage: 4 MG
     Route: 065
     Dates: start: 202011, end: 202205
  4. HYRIMOZ [Concomitant]
     Active Substance: ADALIMUMAB-ADAZ
     Dosage: 40 MG
     Route: 065
     Dates: start: 202004, end: 202009

REACTIONS (6)
  - Cough [Recovered/Resolved]
  - Nasal herpes [Recovered/Resolved]
  - Parathyroid tumour benign [Not Recovered/Not Resolved]
  - Dizziness [Recovered/Resolved]
  - Hyperparathyroidism primary [Not Recovered/Not Resolved]
  - Hyperparathyroidism primary [Recovered/Resolved]

NARRATIVE: CASE EVENT DATE: 20221101
